FAERS Safety Report 24166602 (Version 1)
Quarter: 2024Q3

REPORT INFORMATION
  Report Type: Spontaneous
  Country: GB (occurrence: GB)
  Receive Date: 20240802
  Receipt Date: 20240802
  Transmission Date: 20241017
  Serious: Yes (Other)
  Sender: RANBAXY
  Company Number: GB-MHRA-TPP43165773C124247YC1721321124750

PATIENT
  Age: 84 Year
  Sex: Male
  Weight: 75 kg

DRUGS (20)
  1. TAMSULOSIN [Suspect]
     Active Substance: TAMSULOSIN
     Indication: Ill-defined disorder
     Dosage: UNK
     Route: 065
     Dates: start: 20240718
  2. FLUCLOXACILLIN [Concomitant]
     Active Substance: FLUCLOXACILLIN
     Indication: Ill-defined disorder
     Dosage: ONE CAPSULE TO BE TAKEN FOUR TIMES A DAY
     Route: 065
     Dates: start: 20240423, end: 20240430
  3. AMLODIPINE [Concomitant]
     Active Substance: AMLODIPINE BESYLATE
     Indication: Ill-defined disorder
     Dosage: ONE TABLET TO BE TAKEN ONCE A DAY IN THE MORNIN...
     Route: 065
     Dates: start: 20240501
  4. CEPHALEXIN [Concomitant]
     Active Substance: CEPHALEXIN
     Indication: Ill-defined disorder
     Dosage: ONE CAPSULE TO BE TAKEN THREE TIMES A DAY
     Route: 065
     Dates: start: 20240501, end: 20240508
  5. DERMACOOL [Concomitant]
     Indication: Ill-defined disorder
     Dosage: APPLY TO THE AFFECTED AREA(S) OF THE SKIN AS NECESSARY
     Route: 065
     Dates: start: 20240718
  6. FEXOFENADINE [Concomitant]
     Active Substance: FEXOFENADINE HYDROCHLORIDE
     Indication: Ill-defined disorder
     Dosage: ONE TWICE A DAY AS ADVISED
     Route: 065
     Dates: start: 20240613, end: 20240713
  7. HYDROCORTISONE [Concomitant]
     Active Substance: HYDROCORTISONE\HYDROCORTISONE ACETATE
     Indication: Ill-defined disorder
     Dosage: TO BE APPLIED THINLY TO THE AFFECTED AREA(S) ON...
     Route: 065
     Dates: start: 20240613, end: 20240623
  8. EURAX [Concomitant]
     Active Substance: CROTAMITON
     Indication: Ill-defined disorder
     Dosage: APPLY THINLY THREE TIMES DAILY FOR ITCH
     Route: 065
     Dates: start: 20211231
  9. INDAPAMIDE [Concomitant]
     Active Substance: INDAPAMIDE
     Indication: Ill-defined disorder
     Dosage: ONE TO BE TAKEN EACH MORNING
     Route: 065
     Dates: start: 20211231
  10. METRONIDAZOLE [Concomitant]
     Active Substance: METRONIDAZOLE
     Indication: Ill-defined disorder
     Dosage: APPLY TWICE A DAY
     Route: 065
     Dates: start: 20211231
  11. RAMIPRIL [Concomitant]
     Active Substance: RAMIPRIL
     Indication: Ill-defined disorder
     Dosage: ONE TO BE TAKEN EACH DAY
     Route: 065
     Dates: start: 20211231, end: 20240423
  12. ALPROSTADIL [Concomitant]
     Active Substance: ALPROSTADIL
     Indication: Ill-defined disorder
     Dosage: AS DIRECTED 1 OR 2 PER WEEK
     Route: 065
     Dates: start: 20211231
  13. ACETAMINOPHEN\CODEINE PHOSPHATE [Concomitant]
     Active Substance: ACETAMINOPHEN\CODEINE PHOSPHATE
     Indication: Ill-defined disorder
     Dosage: ONE OR TWO TO BE TAKEN FOUR TIMES A DAY WHEN RE...
     Route: 065
     Dates: start: 20211231
  14. TADALAFIL [Concomitant]
     Active Substance: TADALAFIL
     Indication: Ill-defined disorder
     Dosage: ONE TO BE TAKEN EACH DAY
     Route: 065
     Dates: start: 20230525
  15. TESTOSTERONE [Concomitant]
     Active Substance: TESTOSTERONE
     Indication: Ill-defined disorder
     Dosage: APPLY TO CLEAN DRY SKIN. ONE PUMP ACTUATION DEL...
     Route: 065
     Dates: start: 20230609
  16. ESOMEPRAZOLE [Concomitant]
     Active Substance: ESOMEPRAZOLE
     Indication: Ill-defined disorder
     Dosage: ONE TO BE TAKEN EACH DAY
     Route: 065
     Dates: start: 20230612
  17. ATORVASTATIN [Concomitant]
     Active Substance: ATORVASTATIN
     Indication: Ill-defined disorder
     Dosage: ONE TABLET TO BE TAKEN DAILY TO LOWER CHOLESTER...
     Route: 065
     Dates: start: 20230615
  18. METFORMIN [Concomitant]
     Active Substance: METFORMIN HYDROCHLORIDE
     Indication: Ill-defined disorder
     Dosage: ONE TO BE TAKEN DAILY
     Route: 065
     Dates: start: 20230921, end: 20240423
  19. TAMSULOSIN HYDROCHLORIDE [Concomitant]
     Active Substance: TAMSULOSIN HYDROCHLORIDE
     Indication: Ill-defined disorder
     Dosage: ONE CAPSULE TO BE TAKEN ONCE A DAY
     Route: 065
     Dates: start: 20240423
  20. EMPAGLIFLOZIN [Concomitant]
     Active Substance: EMPAGLIFLOZIN
     Indication: Ill-defined disorder
     Dosage: ONE TABLET TO BE TAKEN ONCE  A DAY  FOR DIABETES
     Route: 065
     Dates: start: 20240501

REACTIONS (1)
  - Exfoliative rash [Recovered/Resolved]

NARRATIVE: CASE EVENT DATE: 20240718
